FAERS Safety Report 20965113 (Version 3)
Quarter: 2025Q3

REPORT INFORMATION
  Report Type: Spontaneous
  Country: EU (occurrence: EU)
  Receive Date: 20220616
  Receipt Date: 20250825
  Transmission Date: 20251021
  Serious: Yes (Life-Threatening, Hospitalization, Other)
  Sender: AUROBINDO
  Company Number: EU-ACRAF SpA-2022-027849

PATIENT
  Age: 15 Year
  Sex: Female
  Weight: 36 kg

DRUGS (1)
  1. ACETAMINOPHEN [Suspect]
     Active Substance: ACETAMINOPHEN
     Indication: Product used for unknown indication
     Route: 048

REACTIONS (4)
  - Suicide attempt [Unknown]
  - Drug abuse [Unknown]
  - Intentional overdose [Unknown]
  - Alanine aminotransferase increased [Unknown]
